FAERS Safety Report 17217416 (Version 1)
Quarter: 2019Q4

REPORT INFORMATION
  Report Type: Spontaneous
  Country: FR (occurrence: FR)
  Receive Date: 20191231
  Receipt Date: 20191231
  Transmission Date: 20200122
  Serious: Yes (Death)
  Sender: FDA-Public Use
  Company Number: FR-ZYDUS-045080

PATIENT
  Age: 82 Year
  Sex: Male
  Weight: 85 kg

DRUGS (6)
  1. PARACETAMOL [Concomitant]
     Active Substance: ACETAMINOPHEN
     Indication: PAIN
     Route: 048
  2. PIROXICAM. [Suspect]
     Active Substance: PIROXICAM
     Indication: BACK PAIN
     Route: 048
     Dates: start: 20191001, end: 20191028
  3. DICLOFENAC [Suspect]
     Active Substance: DICLOFENAC
     Indication: PAIN
     Route: 003
     Dates: start: 20191001, end: 20191028
  4. PREDNISOLONE. [Suspect]
     Active Substance: PREDNISOLONE
     Indication: BACK PAIN
     Route: 048
     Dates: start: 20191028, end: 20191103
  5. IBUPROFEN. [Suspect]
     Active Substance: IBUPROFEN
     Indication: PAIN
     Route: 003
     Dates: start: 20191028, end: 20191103
  6. CODEINE [Concomitant]
     Active Substance: CODEINE
     Indication: PAIN

REACTIONS (2)
  - Cellulitis staphylococcal [Fatal]
  - Spinal cord infection [Fatal]

NARRATIVE: CASE EVENT DATE: 20191103
